FAERS Safety Report 6716293-1 (Version None)
Quarter: 2010Q2

REPORT INFORMATION
  Report Type: 
  Country: None (occurrence: None)
  Receive Date: 20100506
  Receipt Date: 20100506
  Transmission Date: 20101027
  Serious: Yes (Other)
  Sender: FDA-Public Use
  Company Number: None

PATIENT
  Age: 24 Year
  Sex: Female
  Weight: 68.2 kg

DRUGS (1)
  1. ZOFRAN [Suspect]
     Indication: NAUSEA
     Dosage: 2 TABLETS (DISSOLVABLE) ONE BY MOUTH
     Route: 048
     Dates: start: 20100429

REACTIONS (1)
  - DRUG HYPERSENSITIVITY [None]
